FAERS Safety Report 19196007 (Version 9)
Quarter: 2023Q4

REPORT INFORMATION
  Report Type: Report from Study
  Country: AR (occurrence: AR)
  Receive Date: 20210429
  Receipt Date: 20231110
  Transmission Date: 20240109
  Serious: Yes (Life-Threatening, Hospitalization, Other)
  Sender: FDA-Public Use
  Company Number: NVSC2021AR092257

PATIENT
  Age: 25 Year
  Sex: Female

DRUGS (31)
  1. COSENTYX [Suspect]
     Active Substance: SECUKINUMAB
     Indication: Psoriatic arthropathy
     Dosage: 300 MG, QMO
     Route: 065
     Dates: start: 2019
  2. COSENTYX [Suspect]
     Active Substance: SECUKINUMAB
     Indication: Psoriasis
     Dosage: 300 MG, QMO
     Route: 065
     Dates: start: 201912
  3. COSENTYX [Suspect]
     Active Substance: SECUKINUMAB
     Dosage: 300 MG
     Route: 058
     Dates: start: 20191226
  4. COSENTYX [Suspect]
     Active Substance: SECUKINUMAB
     Dosage: 300 MG
     Route: 058
     Dates: start: 20200102
  5. COSENTYX [Suspect]
     Active Substance: SECUKINUMAB
     Dosage: 300 MG
     Route: 058
     Dates: start: 20200111
  6. COSENTYX [Suspect]
     Active Substance: SECUKINUMAB
     Dosage: 300 MG
     Route: 058
     Dates: start: 20200120
  7. COSENTYX [Suspect]
     Active Substance: SECUKINUMAB
     Dosage: 300 MG, QMO
     Route: 058
     Dates: start: 20200302
  8. MEPREDNISONE [Suspect]
     Active Substance: MEPREDNISONE
     Indication: Thrombocytopenia
     Dosage: 40 MG
     Route: 065
  9. MEPREDNISONE [Suspect]
     Active Substance: MEPREDNISONE
     Dosage: 60 MG (IN THE MORNING)
     Route: 065
  10. MEPREDNISONE [Suspect]
     Active Substance: MEPREDNISONE
     Dosage: 40 MG, QD
     Route: 065
     Dates: start: 20190520
  11. MEPREDNISONE [Suspect]
     Active Substance: MEPREDNISONE
     Dosage: UNK, QD (? OF 40MG)
     Route: 065
     Dates: start: 20190603, end: 20190610
  12. MEPREDNISONE [Suspect]
     Active Substance: MEPREDNISONE
     Dosage: UNK, QD (? OF 40MG), EVERY OTHER DAY
     Route: 065
     Dates: start: 20190610, end: 20190618
  13. MEPREDNISONE [Suspect]
     Active Substance: MEPREDNISONE
     Dosage: 60 MG, QD (STOP DATE WAS 24 AUG )
     Route: 065
     Dates: start: 20190724
  14. MEPREDNISONE [Suspect]
     Active Substance: MEPREDNISONE
     Dosage: 50 MG (08 AUG)
     Route: 065
  15. MEPREDNISONE [Suspect]
     Active Substance: MEPREDNISONE
     Dosage: 40 MG, QD (19 AUG)
     Route: 065
     Dates: start: 20190815
  16. MEPREDNISONE [Suspect]
     Active Substance: MEPREDNISONE
     Dosage: 30 UNK (START DATE 20 AUG AND STOP DATE 24 AUG)
     Route: 065
  17. MEPREDNISONE [Suspect]
     Active Substance: MEPREDNISONE
     Dosage: 20 MG, QD (START DATE 25 AUG AND STOP DATE 31 AUG)
     Route: 065
  18. MEPREDNISONE [Suspect]
     Active Substance: MEPREDNISONE
     Dosage: 10 MG, QD (START DATE WAS 01 SEP AND STOP DATE WAS 07 SEP)
     Route: 065
  19. MEPREDNISONE [Suspect]
     Active Substance: MEPREDNISONE
     Dosage: UNK
     Route: 042
  20. MEPREDNISONE [Suspect]
     Active Substance: MEPREDNISONE
     Dosage: 60 MG
     Route: 065
  21. MEPREDNISONE [Suspect]
     Active Substance: MEPREDNISONE
     Dosage: 50 MG
     Route: 065
     Dates: start: 20200422, end: 20200427
  22. MEPREDNISONE [Suspect]
     Active Substance: MEPREDNISONE
     Dosage: 40 MG
     Route: 065
     Dates: start: 20200427, end: 20200504
  23. MEPREDNISONE [Suspect]
     Active Substance: MEPREDNISONE
     Dosage: 40 MG, QD
     Route: 065
     Dates: start: 20200807, end: 20200814
  24. MEPREDNISONE [Suspect]
     Active Substance: MEPREDNISONE
     Dosage: 30 MG, QD
     Route: 065
     Dates: start: 20200815, end: 20200816
  25. MEPREDNISONE [Suspect]
     Active Substance: MEPREDNISONE
     Dosage: 20 MG, QD
     Route: 065
     Dates: start: 20200817, end: 20200818
  26. MEPREDNISONE [Suspect]
     Active Substance: MEPREDNISONE
     Dosage: 10 MG, QD
     Route: 065
     Dates: start: 20200819, end: 20200820
  27. MEPREDNISONE [Suspect]
     Active Substance: MEPREDNISONE
     Dosage: 40 MG
     Route: 065
     Dates: start: 20200908
  28. MEPREDNISONE [Suspect]
     Active Substance: MEPREDNISONE
     Dosage: 60 MG,(POST DINNER)
     Route: 065
     Dates: start: 20210509
  29. MEPREDNISONE [Suspect]
     Active Substance: MEPREDNISONE
     Dosage: UNK
     Route: 065
  30. METHOTREXATE SODIUM [Concomitant]
     Active Substance: METHOTREXATE SODIUM
     Indication: Psoriatic arthropathy
     Dosage: 10 MG
     Route: 065
     Dates: start: 20190606, end: 20190704
  31. ALPRAZOLAM [Concomitant]
     Active Substance: ALPRAZOLAM
     Indication: Product used for unknown indication
     Dosage: 0.25 MG (1 OF 0.25 MG) (MORNG AND BED TIME)
     Route: 065

REACTIONS (40)
  - Thrombocytopenia [Not Recovered/Not Resolved]
  - Petechiae [Unknown]
  - Haematoma [Recovered/Resolved]
  - Clostridium difficile colitis [Unknown]
  - Gastroenteritis [Unknown]
  - Abdominal pain [Unknown]
  - Haemorrhage [Recovered/Resolved]
  - Gynaecological chlamydia infection [Recovered/Resolved]
  - Back pain [Unknown]
  - Psoriatic arthropathy [Unknown]
  - Gynaecological chlamydia infection [Unknown]
  - Steroid withdrawal syndrome [Recovered/Resolved]
  - Corynebacterium infection [Unknown]
  - Arthritis [Unknown]
  - Inflammation [Recovered/Resolved]
  - Candida infection [Unknown]
  - Condition aggravated [Unknown]
  - Anaemia [Unknown]
  - Device delivery system issue [Unknown]
  - Influenza [Unknown]
  - Pharyngitis [Unknown]
  - Headache [Unknown]
  - Myalgia [Recovered/Resolved]
  - Oropharyngeal pain [Recovered/Resolved]
  - Psoriasis [Unknown]
  - Headache [Recovered/Resolved]
  - Vision blurred [Recovered/Resolved]
  - Tachycardia [Recovered/Resolved]
  - Tremor [Recovered/Resolved]
  - Disturbance in attention [Recovered/Resolved]
  - Heavy menstrual bleeding [Recovered/Resolved]
  - Visual impairment [Unknown]
  - Urinary tract infection [Unknown]
  - Back pain [Recovered/Resolved]
  - Pyrexia [Recovered/Resolved]
  - Dry eye [Recovered/Resolved]
  - Sinusitis [Recovered/Resolved]
  - Sinusitis [Recovering/Resolving]
  - Incorrect dose administered [Unknown]
  - Drug ineffective [Unknown]

NARRATIVE: CASE EVENT DATE: 20190508
